FAERS Safety Report 8150638 (Version 3)
Quarter: 2013Q3

REPORT INFORMATION
  Report Type: Spontaneous
  Country: US (occurrence: US)
  Receive Date: 20110922
  Receipt Date: 20130730
  Transmission Date: 20140515
  Serious: Yes (Hospitalization, Other)
  Sender: FDA-Public Use
  Company Number: US-ASTRAZENECA-2011SE12604

PATIENT
  Age: 30 Year
  Sex: Male
  Weight: 95.3 kg

DRUGS (7)
  1. SEROQUEL [Suspect]
     Route: 048
     Dates: start: 20070724
  2. SEROQUEL [Suspect]
     Route: 048
     Dates: start: 200802
  3. BUPROPION HCL XL/WELLBUTRIN XL [Concomitant]
     Route: 048
     Dates: start: 20070724
  4. BUPROPION HCL XL/WELLBUTRIN XL [Concomitant]
     Route: 048
     Dates: start: 20071018
  5. VICODIN [Concomitant]
     Dosage: 5/500
  6. NEXIUM [Concomitant]
     Route: 048
  7. WELLBUTRIN [Concomitant]
     Route: 048

REACTIONS (4)
  - Pancreatitis [Unknown]
  - Diabetic coma [Unknown]
  - Type 2 diabetes mellitus [Unknown]
  - Diabetes mellitus [Unknown]
